FAERS Safety Report 14255289 (Version 1)
Quarter: 2017Q4

REPORT INFORMATION
  Report Type: Spontaneous
  Country: AU (occurrence: AU)
  Receive Date: 20171206
  Receipt Date: 20171206
  Transmission Date: 20180321
  Serious: Yes (Other)
  Sender: FDA-Public Use
  Company Number: PHHY2017AU136202

PATIENT
  Age: 50 Year
  Sex: Female

DRUGS (8)
  1. TAMOXIFEN [Suspect]
     Active Substance: TAMOXIFEN
     Indication: INVASIVE LOBULAR BREAST CARCINOMA
     Dosage: UNK
     Route: 048
     Dates: start: 20141115, end: 201509
  2. GABAPENTIN. [Concomitant]
     Active Substance: GABAPENTIN
     Indication: BREAST CANCER METASTATIC
     Dosage: 2 DF, QD, NOCTE
     Route: 065
  3. LETROZOLE. [Concomitant]
     Active Substance: LETROZOLE
     Indication: BREAST CANCER METASTATIC
     Dosage: 2.5 MG, QD
     Route: 065
  4. ANASTROZOLE. [Suspect]
     Active Substance: ANASTROZOLE
     Indication: HORMONE THERAPY
     Dosage: 1 MG, UNK
     Route: 048
     Dates: start: 201609, end: 20161221
  5. ARIMIDEX [Concomitant]
     Active Substance: ANASTROZOLE
     Indication: INVASIVE LOBULAR BREAST CARCINOMA
     Route: 065
     Dates: start: 201509
  6. VENTOLIN [Concomitant]
     Active Substance: ALBUTEROL SULFATE
     Indication: PRODUCT USED FOR UNKNOWN INDICATION
     Route: 065
  7. TAMOXIFEN [Suspect]
     Active Substance: TAMOXIFEN
     Dosage: 20 MG, UNK
     Route: 048
     Dates: start: 20151221, end: 201608
  8. SERETIDE [Concomitant]
     Active Substance: FLUTICASONE PROPIONATE\SALMETEROL XINAFOATE
     Indication: PRODUCT USED FOR UNKNOWN INDICATION
     Dosage: 1 DF, BID, PUFF
     Route: 065

REACTIONS (4)
  - Arthralgia [Recovered/Resolved]
  - Disease recurrence [Unknown]
  - Skin disorder [Recovered/Resolved]
  - Metastases to bone [Unknown]

NARRATIVE: CASE EVENT DATE: 201608
